FAERS Safety Report 13278857 (Version 2)
Quarter: 2017Q3

REPORT INFORMATION
  Report Type: Spontaneous
  Country: US (occurrence: US)
  Receive Date: 20170228
  Receipt Date: 20170712
  Transmission Date: 20171127
  Serious: Yes (Hospitalization)
  Sender: FDA-Public Use
  Company Number: US-VIFOR (INTERNATIONAL) INC.-VIT-2017-00650

PATIENT
  Age: 93 Year
  Sex: Female

DRUGS (1)
  1. VELTASSA [Suspect]
     Active Substance: PATIROMER
     Indication: PRODUCT USED FOR UNKNOWN INDICATION
     Dates: start: 20161119

REACTIONS (3)
  - Pericardial effusion [Unknown]
  - Frequent bowel movements [Unknown]
  - Hospice care [Unknown]

NARRATIVE: CASE EVENT DATE: 201701
